FAERS Safety Report 20044564 (Version 1)
Quarter: 2021Q4

REPORT INFORMATION
  Report Type: Spontaneous
  Country: ES (occurrence: ES)
  Receive Date: 20211108
  Receipt Date: 20211108
  Transmission Date: 20220303
  Serious: Yes (Hospitalization, Other)
  Sender: FDA-Public Use
  Company Number: None

PATIENT
  Age: 62 Year
  Sex: Male

DRUGS (5)
  1. DEXAMETHASONE [Suspect]
     Active Substance: DEXAMETHASONE
     Indication: Surgery
     Dosage: 4.0 MG EVERY 8 HOURS
     Route: 048
     Dates: start: 20211020, end: 20211025
  2. JARDIANCE [Suspect]
     Active Substance: EMPAGLIFLOZIN
     Indication: Diabetes mellitus
     Dosage: 5.0 MG EVERY 12 H
     Route: 048
     Dates: start: 20210915, end: 20211025
  3. ENALAPRIL BELMAC [Concomitant]
     Indication: Hypertension
     Dosage: 10.0 MG AT BREAKFAST
     Route: 048
     Dates: start: 20201001
  4. SIMVASTATIN [Concomitant]
     Active Substance: SIMVASTATIN
     Indication: Hyperlipidaemia
     Dosage: 20.0 MG AT DINNER
     Route: 048
     Dates: start: 20210311
  5. METAMIZOLE MAGNESIUM [Concomitant]
     Active Substance: METAMIZOLE MAGNESIUM
     Indication: Spinal osteoarthritis
     Dosage: 575.0 MG AT BREAKFAST-LUNCH-DINNER
     Route: 048
     Dates: start: 20211020

REACTIONS (1)
  - Diabetic ketoacidosis [Recovered/Resolved]

NARRATIVE: CASE EVENT DATE: 20211025
